FAERS Safety Report 13849416 (Version 1)
Quarter: 2017Q3

REPORT INFORMATION
  Report Type: Report from Study
  Country: None (occurrence: DE)
  Receive Date: 20170809
  Receipt Date: 20170809
  Transmission Date: 20171127
  Serious: Yes (Death, Hospitalization, Other)
  Sender: FDA-Public Use
  Company Number: DE-ABBVIE-17K-062-2016630-00

PATIENT
  Age: 64 Year
  Sex: Male

DRUGS (16)
  1. BIFITERAL [Concomitant]
     Active Substance: LACTULOSE
     Indication: PRODUCT USED FOR UNKNOWN INDICATION
  2. RIOPAN MAGENGEL [Concomitant]
     Indication: PRODUCT USED FOR UNKNOWN INDICATION
     Dosage: UP TO 3 PER DAY
     Route: 048
  3. XALATAN [Concomitant]
     Active Substance: LATANOPROST
     Indication: PRODUCT USED FOR UNKNOWN INDICATION
     Dosage: 1 DROP PER EYE
  4. DUODOPA [Suspect]
     Active Substance: CARBIDOPA\LEVODOPA
     Indication: PARKINSON^S DISEASE
     Dosage: MD: 5.0 ML; CRD: 4.4 ML/H; CRN: 2.8 ML/H; ED: 1.5ML
     Route: 050
     Dates: start: 20170405, end: 20170612
  5. DUODOPA [Suspect]
     Active Substance: CARBIDOPA\LEVODOPA
     Dosage: MD: 5.0ML; CRD: 3.0ML/H; CRN: 1.4ML/H; ED: 1.5ML
     Route: 050
     Dates: start: 201706, end: 201706
  6. CEFUROXIM [Suspect]
     Active Substance: CEFUROXIME
     Indication: INFECTED DERMAL CYST
  7. MIRTAZAPIN HEXAL [Concomitant]
     Active Substance: MIRTAZAPINE
     Indication: PRODUCT USED FOR UNKNOWN INDICATION
  8. VITAMIN B RATIOPHARM [Concomitant]
     Indication: PRODUCT USED FOR UNKNOWN INDICATION
  9. VITAMIN B1 [Concomitant]
     Active Substance: THIAMINE HYDROCHLORIDE
     Indication: PRODUCT USED FOR UNKNOWN INDICATION
  10. DUODOPA [Suspect]
     Active Substance: CARBIDOPA\LEVODOPA
     Dosage: MD: 5.0ML; CRD: 4.4ML/H; CRN: 1.4ML/H; ED: 1.5ML
     Route: 050
     Dates: start: 20170613, end: 201706
  11. CEFUROXIM [Suspect]
     Active Substance: CEFUROXIME
     Indication: LIPOMA
     Route: 065
     Dates: start: 201706
  12. FRESUBIN SOJA FIBRE [Concomitant]
     Indication: PRODUCT USED FOR UNKNOWN INDICATION
  13. DUODOPA [Suspect]
     Active Substance: CARBIDOPA\LEVODOPA
     Dosage: MD: 5.0ML; CRD: 3.2ML/H; CRN: 1.4ML/H; ED: 1.5ML
     Route: 050
     Dates: start: 20170615
  14. DEKRISTOL [Concomitant]
     Active Substance: CHOLECALCIFEROL
     Indication: PRODUCT USED FOR UNKNOWN INDICATION
  15. EXELON [Concomitant]
     Active Substance: RIVASTIGMINE TARTRATE
     Indication: PRODUCT USED FOR UNKNOWN INDICATION
     Dosage: 4.6 MG / 24 H
     Route: 062
  16. TERZOLIN SHAMPOO [Concomitant]
     Indication: PRODUCT USED FOR UNKNOWN INDICATION

REACTIONS (47)
  - Lipoma [Unknown]
  - Nervousness [Unknown]
  - Hyporeflexia [Unknown]
  - Erythema [Unknown]
  - Decreased appetite [Unknown]
  - Abdominal distension [Unknown]
  - Akinesia [Unknown]
  - Back injury [Unknown]
  - Drug intolerance [Unknown]
  - Disturbance in attention [Unknown]
  - Pupillary reflex impaired [Unknown]
  - General physical health deterioration [Unknown]
  - Musculoskeletal stiffness [Unknown]
  - Haemodynamic instability [Unknown]
  - Confusional state [Unknown]
  - Sepsis [Fatal]
  - Bronchial disorder [Unknown]
  - Respiratory failure [Unknown]
  - Respiratory acidosis [Unknown]
  - Fluid intake reduced [Unknown]
  - Motor dysfunction [Unknown]
  - Restlessness [Unknown]
  - Cerebellar syndrome [Unknown]
  - Dysstasia [Unknown]
  - Hallucination [Recovered/Resolved]
  - Atelectasis [Unknown]
  - Infected dermal cyst [Unknown]
  - Arrhythmia [Unknown]
  - Depressed mood [Unknown]
  - Hallucination [Unknown]
  - Fluid retention [Unknown]
  - Hypophagia [Unknown]
  - Intentional medical device removal by patient [Recovered/Resolved]
  - Device use error [Recovered/Resolved]
  - Aphasia [Unknown]
  - Saccadic eye movement [Unknown]
  - Device dislocation [Unknown]
  - Mobility decreased [Unknown]
  - Cholecystitis [Unknown]
  - Mechanical ventilation complication [Unknown]
  - Incorrect dose administered [Unknown]
  - Pain [Unknown]
  - Flatulence [Unknown]
  - Pneumonia [Unknown]
  - Chills [Unknown]
  - Illusion [Unknown]
  - Hypoaesthesia [Unknown]

NARRATIVE: CASE EVENT DATE: 2017
